FAERS Safety Report 6912096-3 (Version None)
Quarter: 2010Q3

REPORT INFORMATION
  Report Type: 
  Country: None (occurrence: None)
  Receive Date: 20100806
  Receipt Date: 20100729
  Transmission Date: 20110219
  Serious: Yes (Other)
  Sender: FDA-Public Use
  Company Number: US-AMGEN-QUU428117

PATIENT
  Sex: Female

DRUGS (2)
  1. ENBREL [Suspect]
     Indication: PSORIATIC ARTHROPATHY
     Route: 058
     Dates: start: 20021101
  2. ENBREL [Suspect]
     Indication: PSORIASIS

REACTIONS (11)
  - ANAPHYLACTIC SHOCK [None]
  - COUGH [None]
  - DYSPNOEA [None]
  - FOOD ALLERGY [None]
  - HERPES VIRUS INFECTION [None]
  - NASAL CONGESTION [None]
  - ORAL HERPES [None]
  - PSORIASIS [None]
  - SINUSITIS [None]
  - UPPER RESPIRATORY TRACT INFECTION [None]
  - WHEEZING [None]
